FAERS Safety Report 6865412-5 (Version None)
Quarter: 2010Q3

REPORT INFORMATION
  Report Type: 
  Country: None (occurrence: None)
  Receive Date: 20100721
  Receipt Date: 20080919
  Transmission Date: 20110219
  Serious: No
  Sender: FDA-Public Use
  Company Number: US-PFIZER INC-2008036886

PATIENT
  Sex: Female
  Weight: 62.727 kg

DRUGS (5)
  1. CHANTIX [Suspect]
     Indication: SMOKING CESSATION THERAPY
     Dates: start: 20080417
  2. LIPITOR [Concomitant]
  3. ALBUTEROL [Concomitant]
  4. LUNESTA [Concomitant]
     Indication: INSOMNIA
  5. PLAQUENIL [Concomitant]

REACTIONS (4)
  - CHEST DISCOMFORT [None]
  - CHEST PAIN [None]
  - FLATULENCE [None]
  - INSOMNIA [None]
